FAERS Safety Report 13642946 (Version 1)
Quarter: 2017Q2

REPORT INFORMATION
  Report Type: Spontaneous
  Country: US (occurrence: US)
  Receive Date: 20170612
  Receipt Date: 20170612
  Transmission Date: 20170830
  Serious: No
  Sender: FDA-Public Use
  Company Number: US-SEPTODONT-201603725

PATIENT
  Age: 11 Year
  Sex: Male
  Weight: 27 kg

DRUGS (2)
  1. BENZOCAINE. [Concomitant]
     Active Substance: BENZOCAINE
     Dates: start: 20161102, end: 20161102
  2. SEPTOCAINE AND EPINEPHRINE [Suspect]
     Active Substance: ARTICAINE HYDROCHLORIDE\EPINEPHRINE BITARTRATE
     Indication: LOCAL ANAESTHESIA
     Dosage: LR INFERIOR ALVEOLAR IN HEALTHY TISSUE WITH NERVE BLOCK TECHNIQUE AND 30G 1.9CM MONOJECT NEEDLE
     Route: 004
     Dates: start: 20161102, end: 20161102

REACTIONS (3)
  - Injection site swelling [Recovered/Resolved]
  - Injection site pain [Recovered/Resolved]
  - Injection site inflammation [Recovered/Resolved]

NARRATIVE: CASE EVENT DATE: 20161102
